FAERS Safety Report 16438482 (Version 1)
Quarter: 2019Q2

REPORT INFORMATION
  Report Type: Spontaneous
  Country: US (occurrence: US)
  Receive Date: 20190617
  Receipt Date: 20190617
  Transmission Date: 20190711
  Serious: Yes (Hospitalization, Other)
  Sender: FDA-Public Use
  Company Number: US-ZYDUS-037870

PATIENT
  Age: 69 Year
  Sex: Male

DRUGS (1)
  1. MESALAZINE [Suspect]
     Active Substance: MESALAMINE
     Indication: COLITIS ULCERATIVE
     Route: 065

REACTIONS (9)
  - Asthenia [Unknown]
  - Fatigue [Unknown]
  - Metabolic acidosis [Unknown]
  - Nausea [Unknown]
  - Toxicity to various agents [Unknown]
  - Respiratory disorder [Unknown]
  - Vomiting [Unknown]
  - Confusional state [Unknown]
  - Diarrhoea [Unknown]
